FAERS Safety Report 9209266 (Version 1)
Quarter: 2013Q2

REPORT INFORMATION
  Report Type: Spontaneous
  Country: US (occurrence: None)
  Receive Date: 20130403
  Receipt Date: 20130403
  Transmission Date: 20140414
  Serious: Yes (Hospitalization)
  Sender: FDA-Public Use
  Company Number: None

PATIENT
  Age: 72 Year
  Sex: Female
  Weight: 86.4 kg

DRUGS (1)
  1. BENICAR [Suspect]
     Indication: HYPERTENSION
     Route: 048
     Dates: start: 201202

REACTIONS (6)
  - Haematemesis [None]
  - Renal failure [None]
  - Dehydration [None]
  - Colitis [None]
  - Asthenia [None]
  - Haemoglobin decreased [None]
